FAERS Safety Report 8789437 (Version 1)
Quarter: 2012Q4

REPORT INFORMATION
  Report Type: Spontaneous
  Country: GB (occurrence: None)
  Receive Date: 20120906
  Receipt Date: 20120906
  Transmission Date: 20130627
  Serious: Yes (Other)
  Sender: FDA-Public Use
  Company Number: GB-1193882

PATIENT
  Age: 75 Year
  Sex: Male
  Weight: 76.5 kg

DRUGS (11)
  1. CILOXAN [Suspect]
     Route: 047
  2. ALPHOSYL [Concomitant]
  3. ATORVASTATIN [Concomitant]
  4. CLOPIDOGREL [Concomitant]
  5. DOXAZOSIN [Concomitant]
  6. DOXYCYCLINE [Concomitant]
  7. PREDNISOLONE [Concomitant]
  8. SERETIDE [Concomitant]
  9. TAMSULOSIN HYDROCHLORIDE [Concomitant]
  10. TILDIEM [Concomitant]
  11. TIOTROPIUM [Concomitant]

REACTIONS (2)
  - Nausea [None]
  - Dizziness [None]
